FAERS Safety Report 14753553 (Version 1)
Quarter: 2018Q2

REPORT INFORMATION
  Report Type: Spontaneous
  Country: US (occurrence: US)
  Receive Date: 20180412
  Receipt Date: 20180412
  Transmission Date: 20180711
  Serious: Yes (Other)
  Sender: FDA-Public Use
  Company Number: US-ELI_LILLY_AND_COMPANY-US201804001085

PATIENT
  Sex: Male
  Weight: 78.75 kg

DRUGS (2)
  1. TALTZ [Suspect]
     Active Substance: IXEKIZUMAB
     Dosage: UNK, MONTHLY (1/M) (EVERY FOUR WEEKS)
     Route: 058
  2. TALTZ [Suspect]
     Active Substance: IXEKIZUMAB
     Indication: PSORIASIS
     Dosage: UNK, 2/M (EVERY 14 DAYS)
     Route: 058
     Dates: start: 20170815

REACTIONS (3)
  - Multiple sclerosis [Unknown]
  - Inappropriate schedule of drug administration [Unknown]
  - Hyperproteinaemia [Unknown]
